FAERS Safety Report 16159647 (Version 1)
Quarter: 2019Q2

REPORT INFORMATION
  Report Type: Spontaneous
  Country: US (occurrence: US)
  Receive Date: 20190404
  Receipt Date: 20190404
  Transmission Date: 20190711
  Serious: No
  Sender: FDA-Public Use
  Company Number: US-SA-2019SA090862

PATIENT
  Sex: Female

DRUGS (1)
  1. LANTUS SOLOSTAR [Suspect]
     Active Substance: INSULIN GLARGINE
     Dosage: 13 U IN MORNING AND 8 U IN EVENING
     Route: 065

REACTIONS (3)
  - Multiple use of single-use product [Unknown]
  - Needle issue [Unknown]
  - Inappropriate schedule of product administration [Unknown]
